FAERS Safety Report 14660101 (Version 3)
Quarter: 2018Q2

REPORT INFORMATION
  Report Type: Spontaneous
  Country: ES (occurrence: ES)
  Receive Date: 20180320
  Receipt Date: 20180418
  Transmission Date: 20180711
  Serious: Yes (Death, Hospitalization, Other)
  Sender: FDA-Public Use
  Company Number: ES-ELI_LILLY_AND_COMPANY-ES201803003355

PATIENT
  Age: 56 Year
  Sex: Female

DRUGS (2)
  1. DOXORUBICIN [Concomitant]
     Active Substance: DOXORUBICIN
     Indication: PRODUCT USED FOR UNKNOWN INDICATION
     Dosage: UNK, CYCLICAL
     Route: 065
  2. OLARATUMAB [Suspect]
     Active Substance: OLARATUMAB
     Indication: LEIOMYOSARCOMA METASTATIC
     Dosage: UNK, CYCLICAL
     Route: 065

REACTIONS (4)
  - Tumour flare [Unknown]
  - Drug ineffective [Unknown]
  - Malignant neoplasm progression [Unknown]
  - Respiratory failure [Fatal]

NARRATIVE: CASE EVENT DATE: 20180326
